FAERS Safety Report 4888460-3 (Version None)
Quarter: 2005Q4

REPORT INFORMATION
  Report Type: 
  Country: None (occurrence: None)
  Receive Date: 20051221
  Receipt Date: 20050926
  Transmission Date: 20060501
  Serious: No
  Sender: FDA-Public Use
  Company Number: US-YAMANOUCHI-YPA20050505

PATIENT
  Age: 83 Year
  Sex: Female
  Weight: 81.6475 kg

DRUGS (8)
  1. VESICARE [Suspect]
     Indication: HYPERTONIC BLADDER
     Dosage: 5 MG QD PO
     Route: 048
     Dates: start: 20050914
  2. XALATAN [Concomitant]
  3. PRILOSEC [Concomitant]
  4. METOPROLOL [Concomitant]
  5. LISINOPRIL [Concomitant]
  6. CORAL CALCIUM [Concomitant]
  7. CENTRUM SILVER [Concomitant]
  8. METAMUCIL ^PROCTOR + GAMBLE^ [Concomitant]

REACTIONS (1)
  - DRUG INEFFECTIVE [None]
